FAERS Safety Report 5479974-6 (Version None)
Quarter: 2007Q4

REPORT INFORMATION
  Report Type: 
  Country: None (occurrence: None)
  Receive Date: 20071008
  Receipt Date: 20071002
  Transmission Date: 20080405
  Serious: Yes (Hospitalization)
  Sender: FDA-Public Use
  Company Number: AU-MERCK-0710AUS00008

PATIENT
  Age: 67 Year
  Sex: Female

DRUGS (6)
  1. FOSAMAX [Suspect]
     Route: 048
     Dates: end: 20030220
  2. DOTHIEPIN HYDROCHLORIDE [Suspect]
     Indication: DEPRESSION
     Route: 048
     Dates: end: 20030220
  3. NITROFURANTOIN [Suspect]
     Indication: URINARY TRACT DISORDER
     Route: 048
     Dates: end: 20030220
  4. CELECOXIB [Suspect]
     Indication: OSTEOPOROSIS
     Route: 048
     Dates: end: 20030220
  5. ESTROGENS, CONJUGATED [Suspect]
     Indication: MENOPAUSAL SYMPTOMS
     Route: 048
     Dates: end: 20030220
  6. LEVOTHYROXINE SODIUM [Concomitant]
     Route: 048

REACTIONS (5)
  - CHROMATURIA [None]
  - DECREASED APPETITE [None]
  - HEPATITIS CHOLESTATIC [None]
  - JAUNDICE [None]
  - WEIGHT DECREASED [None]
